FAERS Safety Report 11422309 (Version 1)
Quarter: 2015Q3

REPORT INFORMATION
  Report Type: Report from Study
  Country: JP (occurrence: None)
  Receive Date: 20150825
  Receipt Date: 20150825
  Transmission Date: 20151125
  Serious: Yes (Other)
  Sender: FDA-Public Use
  Company Number: KAD201508-002741

PATIENT
  Age: 64 Year
  Sex: Male

DRUGS (3)
  1. PEGYLATED INTERFERON ALFA-2A (PEGYLATED INTERFERON ALFA-2A) [Suspect]
     Active Substance: PEGINTERFERON ALFA-2A
     Indication: CHRONIC HEPATITIS C
  2. RIBAVIRIN (RIBAVIRIN) [Suspect]
     Active Substance: RIBAVIRIN
     Indication: CHRONIC HEPATITIS C
  3. VITAMIN D [Suspect]
     Active Substance: CHOLECALCIFEROL
     Indication: CHRONIC HEPATITIS C
     Dosage: 360 SOFT GEL

REACTIONS (1)
  - Hepatocellular carcinoma [None]
